FAERS Safety Report 20098613 (Version 1)
Quarter: 2021Q4

REPORT INFORMATION
  Report Type: Spontaneous
  Country: CN (occurrence: CN)
  Receive Date: 20211122
  Receipt Date: 20211122
  Transmission Date: 20220303
  Serious: Yes (Other)
  Sender: FDA-Public Use
  Company Number: CN-PFIZER INC-202101549254

PATIENT
  Age: 9 Day
  Sex: Male
  Weight: 1.88 kg

DRUGS (1)
  1. CEFOPERAZONE SODIUM [Suspect]
     Active Substance: CEFOPERAZONE SODIUM
     Indication: Neonatal infection
     Dosage: 0.050 G, 2X/DAY
     Route: 041
     Dates: start: 20211027, end: 20211104

REACTIONS (1)
  - Rash neonatal [Recovering/Resolving]

NARRATIVE: CASE EVENT DATE: 20211104
